FAERS Safety Report 21572572 (Version 2)
Quarter: 2022Q4

REPORT INFORMATION
  Report Type: Spontaneous
  Country: US (occurrence: US)
  Receive Date: 20221109
  Receipt Date: 20221129
  Transmission Date: 20230112
  Serious: No
  Sender: FDA-Public Use
  Company Number: US-BIOGEN-2022BI01160851

PATIENT
  Sex: Female

DRUGS (14)
  1. VUMERITY [Suspect]
     Active Substance: DIROXIMEL FUMARATE
     Indication: Multiple sclerosis
     Route: 050
     Dates: start: 202209
  2. VUMERITY [Suspect]
     Active Substance: DIROXIMEL FUMARATE
     Route: 050
     Dates: start: 20220920
  3. VUMERITY [Suspect]
     Active Substance: DIROXIMEL FUMARATE
     Route: 050
     Dates: start: 20221008, end: 20221008
  4. VUMERITY [Suspect]
     Active Substance: DIROXIMEL FUMARATE
     Dosage: PATIENT REPORTED BY END OF OCT STARTED WITH STARTER DOSES, 231 MG TWICE A DAY FOR 7 DAYS, [THEN I...
     Route: 050
     Dates: start: 202210
  5. VUMERITY [Suspect]
     Active Substance: DIROXIMEL FUMARATE
     Dosage: [PATIENT REPORTED BY END OF OCT STARTED WITH STARTER DOSES, 231 MG TWICE A DAY FOR 7 DAYS], THEN ...
     Route: 050
  6. LEVOTHYROXINE SODIUM [Concomitant]
     Active Substance: LEVOTHYROXINE SODIUM
     Route: 050
  7. DULOXETINE HYDROCHLORIDE [Concomitant]
     Active Substance: DULOXETINE HYDROCHLORIDE
     Route: 050
  8. CLARITIN [Concomitant]
     Active Substance: LORATADINE
     Route: 050
  9. ESTRADIOL [Concomitant]
     Active Substance: ESTRADIOL
     Route: 050
  10. BACLOFEN [Concomitant]
     Active Substance: BACLOFEN
     Route: 050
  11. MODAFINIL [Concomitant]
     Active Substance: MODAFINIL
     Route: 050
  12. TRETINOIN [Concomitant]
     Active Substance: TRETINOIN
     Route: 050
  13. GABAPENTIN [Concomitant]
     Active Substance: GABAPENTIN
     Route: 050
  14. EPINEPHRINE [Concomitant]
     Active Substance: EPINEPHRINE
     Route: 050

REACTIONS (9)
  - Intentional product misuse [Unknown]
  - Pain [Unknown]
  - Flushing [Recovered/Resolved]
  - Swelling face [Recovered/Resolved]
  - Peripheral swelling [Recovered/Resolved]
  - Erythema [Recovered/Resolved]
  - Pruritus [Recovered/Resolved]
  - Hot flush [Recovered/Resolved]
  - Rash [Recovered/Resolved]
